FAERS Safety Report 16018707 (Version 1)
Quarter: 2019Q1

REPORT INFORMATION
  Report Type: Spontaneous
  Country: AU (occurrence: AU)
  Receive Date: 20190228
  Receipt Date: 20190228
  Transmission Date: 20190418
  Serious: Yes (Other)
  Sender: FDA-Public Use
  Company Number: AU-GLAXOSMITHKLINE-AU2019GSK033514

PATIENT
  Age: 27 Year
  Sex: Male

DRUGS (2)
  1. VENTOLIN [Suspect]
     Active Substance: ALBUTEROL SULFATE
     Indication: PRODUCT USED FOR UNKNOWN INDICATION
     Dosage: UNK UNK, PRN
  2. BREO ELLIPTA [Suspect]
     Active Substance: FLUTICASONE FUROATE\VILANTEROL TRIFENATATE
     Indication: PRODUCT USED FOR UNKNOWN INDICATION
     Dosage: UNK UNK, 1D, 200/25
     Dates: start: 2017

REACTIONS (2)
  - Pneumothorax [Unknown]
  - Dyspnoea [Unknown]

NARRATIVE: CASE EVENT DATE: 2018
